FAERS Safety Report 14930268 (Version 1)
Quarter: 2018Q2

REPORT INFORMATION
  Report Type: Spontaneous
  Country: SI (occurrence: SI)
  Receive Date: 20180523
  Receipt Date: 20180523
  Transmission Date: 20180711
  Serious: Yes (Other)
  Sender: FDA-Public Use
  Company Number: SI-ALLERGAN-1827426US

PATIENT
  Age: 85 Year
  Sex: Female

DRUGS (2)
  1. XARELTO [Suspect]
     Active Substance: RIVAROXABAN
     Indication: ATRIAL FIBRILLATION
     Dosage: 20 MG, UNK
     Route: 065
  2. NEBIVOLOL HCL - BP [Suspect]
     Active Substance: NEBIVOLOL
     Indication: PRODUCT USED FOR UNKNOWN INDICATION
     Route: 065

REACTIONS (7)
  - Extravasation [Unknown]
  - Syncope [Unknown]
  - Blood pressure systolic increased [Unknown]
  - Renal impairment [Unknown]
  - Musculoskeletal chest pain [Unknown]
  - Dehydration [Unknown]
  - Chest pain [Unknown]
